FAERS Safety Report 10034003 (Version 1)
Quarter: 2014Q1

REPORT INFORMATION
  Report Type: Spontaneous
  Country: US (occurrence: None)
  Receive Date: 20140324
  Receipt Date: 20140324
  Transmission Date: 20141002
  Serious: Yes (Other)
  Sender: FDA-Public Use
  Company Number: None

PATIENT
  Age: 46 Year
  Sex: Female
  Weight: 97.52 kg

DRUGS (1)
  1. CLONAZEPAM [Suspect]
     Indication: RESTLESS LEGS SYNDROME
     Dosage: 1 PILL AS NEEDED TAKEN BY MOUTH
     Route: 048

REACTIONS (6)
  - Rash [None]
  - Urticaria [None]
  - Erythema [None]
  - Erythema [None]
  - Swelling face [None]
  - Lip swelling [None]
